FAERS Safety Report 4532200-4 (Version None)
Quarter: 2004Q4

REPORT INFORMATION
  Report Type: 
  Country: None (occurrence: None)
  Receive Date: 20041217
  Receipt Date: 20041207
  Transmission Date: 20050328
  Serious: Yes (Hospitalization, Other)
  Sender: FDA-Public Use
  Company Number: 2004099922

PATIENT
  Age: 32 Year
  Sex: Female
  Weight: 64.2 kg

DRUGS (4)
  1. ZYRTEC [Suspect]
     Indication: URTICARIA
     Dosage: 10 MG, ORAL
     Route: 048
     Dates: start: 20040918, end: 20040929
  2. OXATOMIDE [Suspect]
     Indication: URTICARIA
     Dosage: 60 MG, ORAL
     Route: 048
  3. AMPHOTERICIN B [Suspect]
     Indication: URTICARIA
     Dosage: 200 MG, ORAL
     Route: 048
  4. DIPYRIDAMOLE [Suspect]
     Indication: URTICARIA
     Dosage: 100 MG, ORAL
     Route: 048

REACTIONS (1)
  - HEPATOTOXICITY [None]
